FAERS Safety Report 4726931-0 (Version None)
Quarter: 2005Q3

REPORT INFORMATION
  Report Type: 
  Country: None (occurrence: None)
  Receive Date: 20050726
  Receipt Date: 20050720
  Transmission Date: 20060218
  Serious: Yes (Hospitalization)
  Sender: FDA-Public Use
  Company Number: TAP2005Q01227

PATIENT
  Age: 51 Year
  Sex: Female
  Weight: 64.8644 kg

DRUGS (6)
  1. PREVACID [Suspect]
     Indication: GASTROOESOPHAGEAL REFLUX DISEASE
     Dosage: SEE IMAGE, PER ORAL
     Route: 048
     Dates: start: 20020501, end: 20020502
  2. PREVACID [Suspect]
     Indication: HIATUS HERNIA
     Dosage: SEE IMAGE, PER ORAL
     Route: 048
     Dates: start: 20020501, end: 20020502
  3. PREVACID [Suspect]
     Indication: GASTROOESOPHAGEAL REFLUX DISEASE
     Dosage: SEE IMAGE, PER ORAL
     Route: 048
     Dates: start: 20020503, end: 20050718
  4. PREVACID [Suspect]
     Indication: HIATUS HERNIA
     Dosage: SEE IMAGE, PER ORAL
     Route: 048
     Dates: start: 20020503, end: 20050718
  5. HYDROXINE (HYDROXYZINE) [Concomitant]
  6. MOTRIN [Concomitant]

REACTIONS (1)
  - BREAST CANCER FEMALE [None]
